FAERS Safety Report 5696949-2 (Version None)
Quarter: 2008Q2

REPORT INFORMATION
  Report Type: 
  Country: None (occurrence: None)
  Receive Date: 20080408
  Receipt Date: 20080402
  Transmission Date: 20081010
  Serious: Yes (Hospitalization)
  Sender: FDA-Public Use
  Company Number: IT-WYE-H03435708

PATIENT
  Sex: Female

DRUGS (2)
  1. CEFIXORAL [Suspect]
     Indication: PHARYNGITIS
     Dosage: 400 MG, UNKNOWN FREQUENCY
     Route: 048
     Dates: start: 20080315, end: 20080319
  2. ERDOSTEINE [Suspect]
     Indication: PHARYNGITIS
     Dosage: 300 MG, UNKNOWN FREQUENCY
     Route: 065
     Dates: start: 20080319, end: 20080319

REACTIONS (2)
  - ACUTE RESPIRATORY FAILURE [None]
  - LARYNGEAL OEDEMA [None]
